FAERS Safety Report 7640051-7 (Version None)
Quarter: 2011Q3

REPORT INFORMATION
  Report Type: 
  Country: None (occurrence: None)
  Receive Date: 20110727
  Receipt Date: 20110718
  Transmission Date: 20111222
  Serious: Yes (Hospitalization)
  Sender: FDA-Public Use
  Company Number: FR-GENENTECH-319873

PATIENT
  Sex: Male
  Weight: 85 kg

DRUGS (18)
  1. RITUXIMAB [Suspect]
     Dosage: UNK
     Route: 042
     Dates: start: 20041001
  2. RITUXIMAB [Suspect]
     Dosage: 750 MG, UNK
     Route: 042
     Dates: start: 20071022
  3. RITUXIMAB [Suspect]
     Dosage: 720 MG, UNK
     Route: 042
     Dates: start: 20071217
  4. CISPLATIN [Concomitant]
     Indication: LYMPHOMA
     Dosage: 200 MG, UNK
     Dates: start: 20071002
  5. CYTARABINE [Concomitant]
     Indication: LYMPHOMA
     Dosage: 8000 MG, UNK
     Dates: start: 20071002
  6. CYTARABINE [Concomitant]
     Dosage: 8000 MG, UNK
     Dates: start: 20071022
  7. CISPLATIN [Concomitant]
     Dosage: 200 MG, UNK
     Dates: start: 20071114
  8. RITUXIMAB [Suspect]
     Dosage: UNK
     Route: 042
     Dates: end: 20070801
  9. RITUXIMAB [Suspect]
     Dosage: UNK
     Route: 042
     Dates: start: 20090612
  10. CISPLATIN [Concomitant]
     Dosage: 193 MG, UNK
     Dates: start: 20071217
  11. CYTARABINE [Concomitant]
     Dosage: 8000 MG, UNK
     Dates: start: 20071002
  12. ETOPOSIDE [Concomitant]
     Indication: LYMPHOMA
     Dosage: UNK
     Dates: start: 20041001
  13. RITUXIMAB [Suspect]
     Dosage: 750 MG, UNK
     Route: 042
     Dates: start: 20071114
  14. RITUXIMAB [Suspect]
     Dosage: 750 MG, UNK
     Route: 042
     Dates: start: 20071002
  15. CISPLATIN [Concomitant]
     Dosage: 200 MG, UNK
     Dates: start: 20071022
  16. CYTARABINE [Concomitant]
     Dosage: 8000 MG, UNK
     Dates: start: 20071114
  17. RITUXIMAB [Suspect]
     Indication: CENTRAL NERVOUS SYSTEM LYMPHOMA
     Dosage: UNK
     Route: 042
     Dates: start: 20040901, end: 20040901
  18. CYTARABINE [Concomitant]
     Dosage: 7800 MG, UNK
     Dates: start: 20071217

REACTIONS (2)
  - SINUSITIS [None]
  - CHOLECYSTITIS ACUTE [None]
